FAERS Safety Report 9689215 (Version 3)
Quarter: 2014Q1

REPORT INFORMATION
  Report Type: Spontaneous
  Country: MX (occurrence: MX)
  Receive Date: 20131114
  Receipt Date: 20140117
  Transmission Date: 20141002
  Serious: Yes (Hospitalization)
  Sender: FDA-Public Use
  Company Number: MX-BRACCO-000026

PATIENT
  Age: 75 Year
  Sex: Male
  Weight: 80 kg

DRUGS (3)
  1. IOPAMIRO [Suspect]
     Indication: COMPUTERISED TOMOGRAM ABDOMEN
     Route: 042
     Dates: start: 20131101, end: 20131101
  2. IOPAMIRO [Suspect]
     Indication: COMPUTERISED TOMOGRAM ABDOMEN
     Dosage: DILUTED
     Route: 054
     Dates: start: 20131101, end: 20131101
  3. IOPAMIRO [Suspect]
     Indication: COMPUTERISED TOMOGRAM ABDOMEN
     Dosage: DILUTED
     Route: 048
     Dates: start: 20131101, end: 20131101

REACTIONS (2)
  - Bacteraemia [Recovered/Resolved]
  - Off label use [Recovered/Resolved]
